FAERS Safety Report 25794450 (Version 2)
Quarter: 2025Q4

REPORT INFORMATION
  Report Type: Spontaneous
  Country: CO (occurrence: CO)
  Receive Date: 20250912
  Receipt Date: 20251002
  Transmission Date: 20260118
  Serious: Yes (Other)
  Sender: AMGEN
  Company Number: CO-AMGEN-COLSP2025180106

PATIENT
  Age: 59 Year
  Sex: Female

DRUGS (6)
  1. PANITUMUMAB [Suspect]
     Active Substance: PANITUMUMAB
     Indication: Adenocarcinoma of colon
     Dosage: 6 MILLIGRAM/KILOGRAM, Q2WK
     Route: 040
     Dates: start: 202404
  2. PANITUMUMAB [Suspect]
     Active Substance: PANITUMUMAB
     Dosage: 6 MILLIGRAM/KILOGRAM, Q2WK
     Route: 040
  3. OXALIPLATIN [Suspect]
     Active Substance: OXALIPLATIN
     Indication: Adenocarcinoma of colon
     Dosage: 180 MILLIGRAM/SQ. METER, N DAY 1 OF EACH CYCLE
     Route: 040
     Dates: start: 202404
  4. OXALIPLATIN [Suspect]
     Active Substance: OXALIPLATIN
     Dosage: 175 MILLIGRAM/SQ. METER, DOSE REDUCTION: INITIALLY BY 5%
     Route: 040
     Dates: start: 202404
  5. OXALIPLATIN [Suspect]
     Active Substance: OXALIPLATIN
     Dosage: 145 MILLIGRAM/SQ. METER, FOLLOWED BY AN ADDITIONAL 15%
     Route: 040
     Dates: start: 202404
  6. CAPECITABINE [Concomitant]
     Active Substance: CAPECITABINE
     Indication: Adenocarcinoma of colon
     Dosage: 1000 MILLIGRAM/SQ. METER, CYCLICAL, TWICE DAILY FOLLOWED BY A 7-DAY REST PERIOD (EVERY 21 DAYS)
     Route: 048
     Dates: start: 202404

REACTIONS (3)
  - Thrombocytopenia [Unknown]
  - Skin reaction [Unknown]
  - Asthenia [Unknown]

NARRATIVE: CASE EVENT DATE: 20240601
